FAERS Safety Report 14307482 (Version 2)
Quarter: 2018Q1

REPORT INFORMATION
  Report Type: Spontaneous
  Country: JP (occurrence: JP)
  Receive Date: 20171220
  Receipt Date: 20180319
  Transmission Date: 20180509
  Serious: Yes (Other)
  Sender: FDA-Public Use
  Company Number: JP-ASTELLAS-2017JP019475AA

PATIENT
  Age: 73 Year
  Sex: Male
  Weight: 58 kg

DRUGS (20)
  1. LANSOPRAZOLE. [Concomitant]
     Active Substance: LANSOPRAZOLE
     Indication: PRODUCT USED FOR UNKNOWN INDICATION
     Dosage: 15 MG, ONCE DAILY, AFTER BREAKFAST
     Route: 065
  2. SENNOSIDE SAWAI [Concomitant]
     Indication: CONSTIPATION
     Dosage: 24 MG,  ON THE OCCASION OF CONSTIPATION
     Route: 065
  3. JANUVIA [Concomitant]
     Active Substance: SITAGLIPTIN PHOSPHATE
     Indication: PRODUCT USED FOR UNKNOWN INDICATION
     Dosage: 50 MG, ONCE DAILY, AFTER BREAKFAST
     Route: 065
  4. PRAVASTATIN SODIUM. [Concomitant]
     Active Substance: PRAVASTATIN SODIUM
     Indication: PRODUCT USED FOR UNKNOWN INDICATION
     Dosage: 10 MG, ONCE DAILY, AFTER BREAKFAST
     Route: 048
     Dates: end: 20170926
  5. EVIPROSTAT                         /00833501/ [Concomitant]
     Active Substance: SERENOA REPENS WHOLE
     Indication: PRODUCT USED FOR UNKNOWN INDICATION
     Dosage: 1 DF, THRICE DAILY, AFTER BREAKFAST, LUNCH, AND DINNER
     Route: 065
  6. BAYASPIRIN [Concomitant]
     Active Substance: ASPIRIN
     Indication: PRODUCT USED FOR UNKNOWN INDICATION
     Dosage: 100 MG, ONCE DAILY, AFTER BREAKFAST
     Route: 065
  7. URSODEOXYCHOLATE SODIUM [Concomitant]
     Active Substance: URSODEOXYCHOLATE SODIUM
     Indication: PRODUCT USED FOR UNKNOWN INDICATION
     Dosage: 100 MG, THRICE DAILY, AFTER BREAKFAST, LUNCH, AND DINNER
     Route: 048
     Dates: end: 20170927
  8. BETANIS [Suspect]
     Active Substance: MIRABEGRON
     Indication: HYPERTONIC BLADDER
     Dosage: 50 MG, ONCE DAILY, AFTER DINNER
     Route: 048
     Dates: start: 201709, end: 20170914
  9. POLAPREZINC [Concomitant]
     Active Substance: POLAPREZINC
     Indication: PRODUCT USED FOR UNKNOWN INDICATION
     Dosage: 75 MG, TWICE DAILY, AFTER BREAKFAST AND DINNER
     Route: 065
  10. MAGMITT [Concomitant]
     Active Substance: MAGNESIUM OXIDE
     Indication: PRODUCT USED FOR UNKNOWN INDICATION
     Dosage: 330 MG, THRICE DAILY, AFTER BREAKFAST, LUNCH, AND DINNER
     Route: 048
     Dates: end: 20170926
  11. MAGMITT [Concomitant]
     Active Substance: MAGNESIUM OXIDE
     Dosage: 330 MG, THRICE DAILY, AFTER BREAKFAST AND DINNER
     Route: 048
     Dates: start: 20170928
  12. SODIUM CHLORIDE. [Concomitant]
     Active Substance: SODIUM CHLORIDE
     Indication: PRODUCT USED FOR UNKNOWN INDICATION
     Dosage: 1 G, THRICE DAILY, AFTER BREAKFAST, LUNCH, AND DINNER
     Route: 048
     Dates: end: 20170916
  13. CLOPIDOGREL [Suspect]
     Active Substance: CLOPIDOGREL BISULFATE
     Indication: CEREBRAL INFARCTION
     Dosage: 75 MG, ONCE DAILY, AFTER BREAKFAST
     Route: 048
     Dates: start: 201708, end: 20170914
  14. ZOLPIDEM TARTRATE. [Suspect]
     Active Substance: ZOLPIDEM TARTRATE
     Indication: INSOMNIA
     Dosage: 5 MG, AS NEEDED, ON THE OCCASION OF INSOMNIA
     Route: 048
     Dates: start: 201709, end: 20170914
  15. SODIUM CHLORIDE. [Concomitant]
     Active Substance: SODIUM CHLORIDE
     Dosage: 1 G, THRICE DAILY, AFTER BREAKFAST, LUNCH, AND DINNER
     Route: 048
     Dates: start: 20170920, end: 20170927
  16. METGLUCO [Concomitant]
     Active Substance: METFORMIN HYDROCHLORIDE
     Indication: PRODUCT USED FOR UNKNOWN INDICATION
     Dosage: UNK UNK, UNKNOWN FREQ.
     Route: 065
  17. JUVELA                             /00110502/ [Concomitant]
     Indication: PRODUCT USED FOR UNKNOWN INDICATION
     Dosage: 0.5 G, TWICE DAILY, AFTER BREAKFAST AND DINNER
     Route: 065
     Dates: end: 20170919
  18. MAGMITT [Concomitant]
     Active Substance: MAGNESIUM OXIDE
     Dosage: 330 MG, THRICE DAILY, AFTER BREAKFAST, LUNCH, AND DINNER
     Route: 048
     Dates: start: 20171201
  19. SUREPOST [Concomitant]
     Active Substance: REPAGLINIDE
     Indication: PRODUCT USED FOR UNKNOWN INDICATION
     Dosage: 0.5 MG, THRICE DAILY, JUST BEFORE BREAKFAST, LUNCH, AND DINNER
     Route: 065
     Dates: end: 20170919
  20. LIVALO [Concomitant]
     Active Substance: PITAVASTATIN CALCIUM
     Indication: PRODUCT USED FOR UNKNOWN INDICATION
     Dosage: UNK UNK, UNKNOWN FREQ.
     Route: 065

REACTIONS (1)
  - Toxic skin eruption [Recovered/Resolved]

NARRATIVE: CASE EVENT DATE: 20170914
